FAERS Safety Report 8470495-5 (Version None)
Quarter: 2012Q2

REPORT INFORMATION
  Report Type: 
  Country: None (occurrence: None)
  Receive Date: 20120627
  Receipt Date: 20110607
  Transmission Date: 20120825
  Serious: Yes (Other)
  Sender: FDA-Public Use
  Company Number: US-MYLANLABS-2011S1011829

PATIENT
  Age: 84 Year
  Sex: Male
  Weight: 60.33 kg

DRUGS (18)
  1. CLARITIN /00917501/ [Concomitant]
  2. STOOL SOFTENER [Concomitant]
  3. FLOMAX [Concomitant]
  4. ZOLPIDEM [Concomitant]
  5. NAPROXEN (ALEVE) [Concomitant]
  6. PERFOROMIST [Suspect]
     Indication: CHRONIC OBSTRUCTIVE PULMONARY DISEASE
     Route: 055
     Dates: start: 20110604
  7. BUDESONIDE [Suspect]
     Indication: CHRONIC OBSTRUCTIVE PULMONARY DISEASE
     Route: 055
     Dates: start: 20110604, end: 20110607
  8. PREDNISONE TAB [Concomitant]
  9. HYDROCHLOROTHIAZIDE [Concomitant]
  10. MULTI-VITAMIN [Concomitant]
  11. SINGULAIR [Concomitant]
  12. OMEGA 3 FATTY ACID [Concomitant]
  13. CO-Q10-CHLORELLA [Concomitant]
  14. BEANO [Concomitant]
  15. CIPROFLOXACIN HCL [Concomitant]
  16. ULTRAM [Concomitant]
  17. LISINOPRIL [Concomitant]
  18. FINASTERIDE [Concomitant]

REACTIONS (2)
  - DYSPNOEA [None]
  - CHRONIC OBSTRUCTIVE PULMONARY DISEASE [None]
